FAERS Safety Report 9794645 (Version 2)
Quarter: 2014Q1

REPORT INFORMATION
  Report Type: Spontaneous
  Country: JP (occurrence: JP)
  Receive Date: 20140102
  Receipt Date: 20140221
  Transmission Date: 20141002
  Serious: Yes (Other)
  Sender: FDA-Public Use
  Company Number: JP-GLAXOSMITHKLINE-B0956618A

PATIENT
  Age: 59 Year
  Sex: Female
  Weight: 48 kg

DRUGS (2)
  1. HYCAMTIN [Suspect]
     Indication: OVARIAN CANCER RECURRENT
     Dosage: 1.2MGM2 PER DAY
     Route: 042
     Dates: start: 20130311, end: 20130614
  2. DEXART [Concomitant]
     Indication: VOMITING
     Dosage: 6.6MG PER DAY
     Route: 042
     Dates: start: 20130311, end: 20130614

REACTIONS (11)
  - Fatigue [Recovered/Resolved]
  - White blood cell count decreased [Recovered/Resolved]
  - Neutrophil count decreased [Recovered/Resolved]
  - Red blood cell count decreased [Recovered/Resolved]
  - Anaemia [Recovering/Resolving]
  - Pruritus [Recovered/Resolved]
  - Peripheral sensory neuropathy [Recovered/Resolved]
  - Constipation [Recovered/Resolved]
  - Vaginal inflammation [Recovered/Resolved]
  - Platelet count decreased [Recovered/Resolved]
  - Decreased appetite [Recovered/Resolved]
